FAERS Safety Report 24379339 (Version 8)
Quarter: 2025Q1

REPORT INFORMATION
  Report Type: Spontaneous
  Country: US (occurrence: US)
  Receive Date: 20240930
  Receipt Date: 20250131
  Transmission Date: 20250408
  Serious: No
  Sender: KARYOPHARM THERAPEUTICS
  Company Number: US-KARYOPHARM-2024KPT001578

PATIENT

DRUGS (15)
  1. XPOVIO [Suspect]
     Active Substance: SELINEXOR
     Indication: Plasma cell myeloma
     Dosage: 80 MG, WEEKLY
     Route: 048
     Dates: start: 20240923, end: 2024
  2. XPOVIO [Suspect]
     Active Substance: SELINEXOR
     Dosage: 60 MG, WEEKLY
     Route: 048
  3. KYPROLIS [Concomitant]
     Active Substance: CARFILZOMIB
  4. DEXAMETHASONE [Concomitant]
     Active Substance: DEXAMETHASONE
  5. ACYCLOVIR [Concomitant]
     Active Substance: ACYCLOVIR
  6. LIPITOR [Concomitant]
     Active Substance: ATORVASTATIN CALCIUM
  7. ATOVAQUONE [Concomitant]
     Active Substance: ATOVAQUONE
  8. NEXIUM I.V. [Concomitant]
     Active Substance: ESOMEPRAZOLE SODIUM
  9. SINGULAIR [Concomitant]
     Active Substance: MONTELUKAST SODIUM
  10. OXYCODONE [Concomitant]
     Active Substance: OXYCODONE
  11. LYRICA [Concomitant]
     Active Substance: PREGABALIN
  12. AMBIEN [Concomitant]
     Active Substance: ZOLPIDEM TARTRATE
  13. COMPAZINE [Concomitant]
     Active Substance: PROCHLORPERAZINE MALEATE
  14. XGEVA [Concomitant]
     Active Substance: DENOSUMAB
  15. ZOLPIDEM [Concomitant]
     Active Substance: ZOLPIDEM TARTRATE

REACTIONS (8)
  - Abdominal pain [Not Recovered/Not Resolved]
  - Feeling abnormal [Recovered/Resolved]
  - COVID-19 [Recovering/Resolving]
  - Nausea [Recovering/Resolving]
  - Decreased appetite [Unknown]
  - Diarrhoea [Unknown]
  - Vomiting [Unknown]
  - Upper respiratory tract infection [Not Recovered/Not Resolved]

NARRATIVE: CASE EVENT DATE: 20240101
